FAERS Safety Report 4900979-5 (Version None)
Quarter: 2006Q1

REPORT INFORMATION
  Report Type: 
  Country: None (occurrence: None)
  Receive Date: 20060201
  Receipt Date: 20060118
  Transmission Date: 20060701
  Serious: Yes (Hospitalization)
  Sender: FDA-Public Use
  Company Number: DE200601000729

PATIENT
  Age: 51 Year
  Sex: Male

DRUGS (3)
  1. ZYPREXA [Suspect]
     Indication: BIPOLAR DISORDER
     Dosage: 10 MG, DAILY (1/D); ORAL, 5 MG, DAILY; 1/D); ORAL
     Route: 048
     Dates: end: 20060104
  2. ZYPREXA [Suspect]
     Indication: BIPOLAR DISORDER
     Dosage: 10 MG, DAILY (1/D); ORAL, 5 MG, DAILY; 1/D); ORAL
     Route: 048
     Dates: start: 20051201
  3. ZOPICLONE [Concomitant]

REACTIONS (9)
  - AGITATION [None]
  - BLOOD TRIGLYCERIDES INCREASED [None]
  - DEPENDENCE [None]
  - FEAR [None]
  - HYPERTENSION [None]
  - INSOMNIA [None]
  - LYMPHOEDEMA [None]
  - MANIA [None]
  - OEDEMA PERIPHERAL [None]
